FAERS Safety Report 16332304 (Version 2)
Quarter: 2019Q2

REPORT INFORMATION
  Report Type: Spontaneous
  Country: US (occurrence: US)
  Receive Date: 20190520
  Receipt Date: 20190528
  Transmission Date: 20190711
  Serious: No
  Sender: FDA-Public Use
  Company Number: US-MYLANLABS-2019M1042185

PATIENT
  Sex: Female
  Weight: 84 kg

DRUGS (1)
  1. WIXELA INHUB [Suspect]
     Active Substance: FLUTICASONE PROPIONATE\SALMETEROL XINAFOATE
     Indication: ASTHMA
     Dosage: UNK UNK, BID
     Route: 048
     Dates: start: 20190424, end: 20190426

REACTIONS (2)
  - Device defective [None]
  - Wheezing [Recovering/Resolving]

NARRATIVE: CASE EVENT DATE: 20190424
